FAERS Safety Report 8105698-2 (Version None)
Quarter: 2012Q1

REPORT INFORMATION
  Report Type: 
  Country: None (occurrence: None)
  Receive Date: 20120201
  Receipt Date: 20120127
  Transmission Date: 20120608
  Serious: Yes (Other)
  Sender: FDA-Public Use
  Company Number: US-PFIZER INC-2011300823

PATIENT
  Sex: Female
  Weight: 54.422 kg

DRUGS (4)
  1. RITALIN [Suspect]
     Indication: ATTENTION DEFICIT/HYPERACTIVITY DISORDER
     Dosage: UNK
     Dates: start: 20110601, end: 20110901
  2. DEPLIN [Concomitant]
     Indication: PANIC ATTACK
     Dosage: UNK
  3. ZOLOFT [Suspect]
     Indication: PANIC ATTACK
     Dosage: 12.5 MG, 2X/DAY
     Route: 048
     Dates: start: 20111125
  4. ZOLOFT [Suspect]
     Indication: ANXIETY
     Dosage: 25 MG, 2X/DAY
     Route: 048

REACTIONS (4)
  - SLEEP DISORDER [None]
  - MENORRHAGIA [None]
  - PANIC ATTACK [None]
  - CONFUSIONAL STATE [None]
